FAERS Safety Report 9589525 (Version 1)
Quarter: 2013Q4

REPORT INFORMATION
  Report Type: Spontaneous
  Country: US (occurrence: US)
  Receive Date: 20131003
  Receipt Date: 20131003
  Transmission Date: 20140711
  Serious: No
  Sender: FDA-Public Use
  Company Number: US-009507513-1309USA010414

PATIENT
  Age: 44 Year
  Sex: Female

DRUGS (1)
  1. NASONEX [Suspect]
     Indication: RHINITIS ALLERGIC
     Dosage: 50 MICROGRAM, ONE SPRAY IN EACH NOSTRIL, BID
     Route: 045
     Dates: start: 201301

REACTIONS (2)
  - Drug dose omission [Unknown]
  - Product quality issue [Unknown]
